FAERS Safety Report 24563846 (Version 1)
Quarter: 2024Q4

REPORT INFORMATION
  Report Type: Spontaneous
  Country: CN (occurrence: CN)
  Receive Date: 20241030
  Receipt Date: 20241030
  Transmission Date: 20250115
  Serious: Yes (Hospitalization, Other)
  Sender: AZURITY PHARMACEUTICALS
  Company Number: CN-AZURITY PHARMACEUTICALS, INC.-AZR202410-000952

PATIENT
  Age: 15 Year
  Sex: Male

DRUGS (1)
  1. VANCOMYCIN HYDROCHLORIDE [Suspect]
     Active Substance: VANCOMYCIN HYDROCHLORIDE
     Indication: Meningitis bacterial
     Dosage: UNK
     Route: 065

REACTIONS (4)
  - Gastritis [Unknown]
  - Colitis [Unknown]
  - Gastrointestinal haemorrhage [Unknown]
  - Drug reaction with eosinophilia and systemic symptoms [Unknown]
